FAERS Safety Report 7937604-5 (Version None)
Quarter: 2011Q4

REPORT INFORMATION
  Report Type: 
  Country: None (occurrence: None)
  Receive Date: 20111123
  Receipt Date: 20111118
  Transmission Date: 20120403
  Serious: Yes (Hospitalization)
  Sender: FDA-Public Use
  Company Number: US-TEVA-309952USA

PATIENT
  Sex: Female

DRUGS (16)
  1. FOLIC ACID [Concomitant]
     Dates: start: 20100501
  2. ATENOLOL [Concomitant]
     Dates: start: 20080801
  3. METHOTREXATE [Suspect]
     Indication: RHEUMATOID ARTHRITIS
     Dosage: 12.5 MG 1 WEEK
     Route: 048
     Dates: start: 20100501
  4. CARBAMAZEPINE [Concomitant]
     Dates: start: 19950101
  5. CALCIUM CARBONATE [Concomitant]
     Dates: start: 20100601
  6. ABATACEPT [Suspect]
     Indication: RHEUMATOID ARTHRITIS
     Dosage: 1 DOSAGE FORM
     Route: 058
     Dates: start: 20100901
  7. FERROUS SULFATE TAB [Concomitant]
     Dates: start: 20100301
  8. CYANOCOBALAMIN [Concomitant]
     Dates: start: 20080801
  9. ASCORBIC ACID [Concomitant]
     Dates: start: 20080801
  10. PRAVASTATIN SODIUM [Concomitant]
     Dates: start: 20100810
  11. LISINOPRIL [Concomitant]
     Dates: start: 20101020
  12. ERGOCALCIFEROL [Concomitant]
     Dates: start: 20100301
  13. CALCIUM CARBONATE [Concomitant]
     Dates: start: 20100401
  14. ACETAMINOPHEN [Concomitant]
     Dates: start: 20090801
  15. ADALIMUMAB [Suspect]
     Indication: RHEUMATOID ARTHRITIS
     Dosage: A DOSAGE FORM
     Route: 058
     Dates: start: 20100901
  16. ACETYLSALICYLIC ACID SRT [Concomitant]
     Dates: start: 20090801

REACTIONS (1)
  - DIVERTICULITIS [None]
